FAERS Safety Report 6156518-7 (Version None)
Quarter: 2009Q2

REPORT INFORMATION
  Report Type: 
  Country: None (occurrence: None)
  Receive Date: 20090416
  Receipt Date: 20090408
  Transmission Date: 20091009
  Serious: Yes (Hospitalization, Other)
  Sender: FDA-Public Use
  Company Number: US-WYE-H08872909

PATIENT
  Age: 68 Year
  Sex: Male

DRUGS (2)
  1. TEMSIROLIMUS [Suspect]
     Indication: MANTLE CELL LYMPHOMA
     Dosage: 25 MG IV DAYS 1,8,15,22
     Route: 042
     Dates: start: 20080616, end: 20090209
  2. RITUXIMAB [Suspect]
     Indication: MANTLE CELL LYMPHOMA
     Dosage: 375 MG/M^2 ON DAY 1 OF CYCLES 3,5,7,9,AND 11 ONLY
     Route: 042
     Dates: end: 20090126

REACTIONS (2)
  - ATRIAL THROMBOSIS [None]
  - LEFT VENTRICULAR DYSFUNCTION [None]
